FAERS Safety Report 9775221 (Version 2)
Quarter: 2013Q4

REPORT INFORMATION
  Report Type: Report from Study
  Country: ES (occurrence: ES)
  Receive Date: 20131220
  Receipt Date: 20131231
  Transmission Date: 20140711
  Serious: Yes (Other)
  Sender: FDA-Public Use
  Company Number: ES-INCYTE CORPORATION-2013IN002973

PATIENT
  Age: 73 Year
  Sex: Female
  Weight: 56 kg

DRUGS (6)
  1. INC424 [Suspect]
     Indication: MYELOFIBROSIS
     Dosage: 15 MG, BID
     Route: 048
     Dates: start: 20120511, end: 20130705
  2. INC424 [Suspect]
     Dosage: 10 MG, BID
     Route: 048
     Dates: start: 20130706, end: 20131208
  3. ZOLPIDEM [Concomitant]
     Dosage: UNK
     Dates: start: 20120511, end: 20131209
  4. CELECOXIB [Concomitant]
     Dosage: UNK
     Dates: start: 20121026, end: 20131209
  5. RISEDRONATE [Concomitant]
     Dosage: UNK
     Dates: start: 20121126, end: 20131209
  6. ALDACTONE                          /00006201/ [Concomitant]
     Dosage: UNK
     Dates: start: 20120508, end: 20131209

REACTIONS (2)
  - Duodenal stenosis [Not Recovered/Not Resolved]
  - Acute leukaemia [Not Recovered/Not Resolved]
